FAERS Safety Report 8271339-7 (Version None)
Quarter: 2012Q2

REPORT INFORMATION
  Report Type: 
  Country: None (occurrence: None)
  Receive Date: 20120410
  Receipt Date: 20120409
  Transmission Date: 20120825
  Serious: Yes (Other)
  Sender: FDA-Public Use
  Company Number: US-PFIZER INC-2012004398

PATIENT
  Sex: Female

DRUGS (3)
  1. RHOGAM [Concomitant]
     Indication: RHESUS ANTIBODIES NEGATIVE
     Dosage: 300 UG, UNK
  2. MULTI-VITAMINS [Concomitant]
     Dosage: UNK
  3. ZOLOFT [Suspect]
     Indication: ANXIETY
     Dosage: 50 MG, 2X/DAY
     Route: 048

REACTIONS (2)
  - STILLBIRTH [None]
  - UMBILICAL CORD ABNORMALITY [None]
